FAERS Safety Report 4306930-3 (Version None)
Quarter: 2004Q1

REPORT INFORMATION
  Report Type: 
  Country: None (occurrence: None)
  Receive Date: 20040227
  Receipt Date: 20030828
  Transmission Date: 20041129
  Serious: Yes (Life-Threatening, Hospitalization)
  Sender: FDA-Public Use
  Company Number: WAES 0308AUS00079

PATIENT
  Age: 71 Year
  Sex: Male

DRUGS (8)
  1. ACETAMINOPHEN [Concomitant]
  2. ANALGESIC OR ANESTHETIC (UNSPECIFIED) [Concomitant]
  3. FUROSEMIDE [Concomitant]
  4. FUSIDIC ACID [Suspect]
     Indication: IMPAIRED HEALING
     Dates: start: 20020101, end: 20020101
  5. IRBESARTAN [Concomitant]
  6. METOPROLOL [Concomitant]
  7. ZOCOR [Suspect]
     Indication: HYPERCHOLESTEROLAEMIA
     Route: 048
     Dates: start: 19940101, end: 20020101
  8. WARFARIN [Concomitant]

REACTIONS (13)
  - ABDOMINAL PAIN [None]
  - BLOOD CREATININE INCREASED [None]
  - BLOOD UREA INCREASED [None]
  - DEHYDRATION [None]
  - DRUG INTERACTION [None]
  - GRAFT INFECTION [None]
  - HEPATITIS [None]
  - IMPAIRED HEALING [None]
  - METHICILLIN-RESISTANT STAPHYLOCOCCAL AUREUS TEST POSITIVE [None]
  - MYALGIA [None]
  - NAUSEA [None]
  - RENAL FAILURE [None]
  - RHABDOMYOLYSIS [None]
